FAERS Safety Report 9034016 (Version 1)
Quarter: 2013Q1

REPORT INFORMATION
  Report Type: Spontaneous
  Country: US (occurrence: US)
  Receive Date: 20130128
  Receipt Date: 20130128
  Transmission Date: 20140127
  Serious: Yes (Hospitalization, Other)
  Sender: FDA-Public Use
  Company Number: US-AMGEN-USASP2012063381

PATIENT
  Age: 91 Year
  Sex: Female
  Weight: 118 kg

DRUGS (6)
  1. ENBREL [Suspect]
     Indication: RHEUMATOID ARTHRITIS
     Dosage: 50 MG, QWK
     Route: 058
  2. LISINOPRIL [Concomitant]
     Dosage: 20 MG, UNK
  3. NORVASC [Concomitant]
     Dosage: 5 MG, UNK
  4. ALLOPURINOL [Concomitant]
     Dosage: 300 MG, UNK
  5. FOLIC ACID [Concomitant]
     Dosage: UNK
  6. AGGRENOX [Concomitant]
     Dosage: 25-200 MG

REACTIONS (5)
  - Diverticulitis [Unknown]
  - Loss of consciousness [Unknown]
  - Haemoglobin decreased [Unknown]
  - Anaemia [Unknown]
  - Nasopharyngitis [Unknown]
